FAERS Safety Report 11919619 (Version 2)
Quarter: 2016Q1

REPORT INFORMATION
  Report Type: Spontaneous
  Country: US (occurrence: US)
  Receive Date: 20160115
  Receipt Date: 20160219
  Transmission Date: 20160526
  Serious: Yes (Hospitalization, Other)
  Sender: FDA-Public Use
  Company Number: US-AMGEN-USASP2016001543

PATIENT
  Age: 55 Year
  Sex: Female

DRUGS (2)
  1. ENBREL [Suspect]
     Active Substance: ETANERCEPT
     Indication: ANKYLOSING SPONDYLITIS
     Dosage: 25 MG, 2 TIMES/WK
     Route: 065
     Dates: end: 2014
  2. ENBREL [Suspect]
     Active Substance: ETANERCEPT
     Dosage: 50 MG, QWK
     Route: 065
     Dates: start: 2014

REACTIONS (19)
  - Sciatica [Unknown]
  - Intervertebral disc protrusion [Unknown]
  - Musculoskeletal stiffness [Unknown]
  - Joint range of motion decreased [Unknown]
  - Injection site haemorrhage [Unknown]
  - Metabolic surgery [Unknown]
  - Drug dose omission [Unknown]
  - Condition aggravated [Unknown]
  - Blindness unilateral [Unknown]
  - Injection site extravasation [Unknown]
  - Transplant failure [Unknown]
  - Neuralgia [Unknown]
  - Arthropathy [Unknown]
  - Arthritis [Unknown]
  - Pain [Unknown]
  - Mobility decreased [Unknown]
  - Abdominal operation [Recovered/Resolved]
  - Corneal transplant [Unknown]
  - Injection site pain [Unknown]

NARRATIVE: CASE EVENT DATE: 2010
